FAERS Safety Report 8160879-7 (Version None)
Quarter: 2012Q1

REPORT INFORMATION
  Report Type: 
  Country: None (occurrence: None)
  Receive Date: 20120223
  Receipt Date: 20120214
  Transmission Date: 20120608
  Serious: Yes (Hospitalization)
  Sender: FDA-Public Use
  Company Number: US-ASTRAZENECA-2012SE10508

PATIENT
  Age: 6 Year
  Sex: Male
  Weight: 63.5 kg

DRUGS (6)
  1. SEROQUEL [Suspect]
     Indication: SUICIDAL IDEATION
     Dosage: 50 MG TWICE DAILY AND 100 MG AT NIGHT
     Route: 048
  2. PROZAC [Concomitant]
  3. ATRIPLA [Concomitant]
     Indication: HIV TEST POSITIVE
  4. VALBUTEN [Concomitant]
  5. SEROQUEL [Suspect]
     Indication: EMOTIONAL DISTRESS
     Dosage: 50 MG TWICE DAILY AND 100 MG AT NIGHT
     Route: 048
  6. SEROQUEL [Suspect]
     Indication: HALLUCINATION
     Dosage: 50 MG TWICE DAILY AND 100 MG AT NIGHT
     Route: 048

REACTIONS (2)
  - EMOTIONAL DISTRESS [None]
  - OFF LABEL USE [None]
